FAERS Safety Report 10262669 (Version 2)
Quarter: 2014Q2

REPORT INFORMATION
  Report Type: Report from Study
  Country: US (occurrence: US)
  Receive Date: 20140626
  Receipt Date: 20140626
  Transmission Date: 20141212
  Serious: Yes (Death)
  Sender: FDA-Public Use
  Company Number: US-MYLANLABS-2013S1010925

PATIENT
  Age: 71 Year
  Sex: Female
  Weight: 92.99 kg

DRUGS (12)
  1. CLOZAPINE TABLETS [Suspect]
     Indication: SCHIZOPHRENIA, PARANOID TYPE
     Route: 048
     Dates: end: 20130501
  2. CLOZAPINE TABLETS [Suspect]
     Indication: SCHIZOPHRENIA, PARANOID TYPE
     Route: 048
     Dates: end: 20130501
  3. NAMENDA [Concomitant]
     Route: 048
  4. PLAVIX [Concomitant]
  5. LOPRESSOR [Concomitant]
     Dosage: USING 1/2 OF A 25MG TABLET
     Route: 048
  6. PRAVACHOL [Concomitant]
     Route: 048
  7. CALCIUM [Concomitant]
     Route: 048
  8. PREVACID [Concomitant]
     Route: 048
  9. VESICARE [Concomitant]
     Route: 048
  10. ASA [Concomitant]
     Route: 048
  11. DOCUSATE [Concomitant]
     Route: 048
  12. ARICEPT [Concomitant]
     Dosage: AT 8PM

REACTIONS (1)
  - Cerebrovascular accident [Fatal]
